FAERS Safety Report 5730173-X (Version None)
Quarter: 2008Q2

REPORT INFORMATION
  Report Type: 
  Country: None (occurrence: None)
  Receive Date: 20080507
  Receipt Date: 20080422
  Transmission Date: 20081010
  Serious: Yes (Hospitalization)
  Sender: FDA-Public Use
  Company Number: NL-ELI_LILLY_AND_COMPANY-NL200804006329

PATIENT
  Sex: Male
  Weight: 50.7 kg

DRUGS (4)
  1. HUMATROPE [Suspect]
     Dosage: 0.2 MG, UNKNOWN
     Route: 058
     Dates: start: 20011119
  2. HYDROCORTISONE [Concomitant]
     Indication: ADRENAL DISORDER
     Dosage: UNK, UNK
     Dates: start: 20010101
  3. SUSTANON /NET/ [Concomitant]
     Indication: SECONDARY HYPOGONADISM
     Dosage: UNK, UNK
     Dates: start: 20010101
  4. LEVOTHYROXINE SODIUM [Concomitant]
     Indication: ADRENAL DISORDER
     Dosage: UNK, UNKNOWN
     Route: 065
     Dates: start: 20010101

REACTIONS (1)
  - ADRENOCORTICAL INSUFFICIENCY ACUTE [None]
